FAERS Safety Report 6429729-0 (Version None)
Quarter: 2009Q4

REPORT INFORMATION
  Report Type: 
  Country: None (occurrence: None)
  Receive Date: 20091103
  Receipt Date: 20091019
  Transmission Date: 20100525
  Serious: Yes (Hospitalization)
  Sender: FDA-Public Use
  Company Number: 02100-JPN-06-0517

PATIENT
  Age: 63 Year
  Sex: Male
  Weight: 58 kg

DRUGS (4)
  1. PLETAL [Suspect]
     Indication: CEREBRAL INFARCTION
     Dosage: 81 MG, QD ORAL
     Route: 048
     Dates: start: 20050727, end: 20061030
  2. BASEN (VOGLIBOSE) [Concomitant]
  3. AMARYL [Concomitant]
  4. ASPIRIN [Suspect]

REACTIONS (5)
  - BRAIN CONTUSION [None]
  - FALL [None]
  - HEAD INJURY [None]
  - SKULL FRACTURE [None]
  - SUBARACHNOID HAEMORRHAGE [None]
